FAERS Safety Report 9525266 (Version 1)
Quarter: 2013Q3

REPORT INFORMATION
  Report Type: Spontaneous
  Country: US (occurrence: None)
  Receive Date: 20130913
  Receipt Date: 20130913
  Transmission Date: 20140515
  Serious: No
  Sender: FDA-Public Use
  Company Number: None

PATIENT
  Sex: Female

DRUGS (1)
  1. HUMIRA 40 MG ABBVIE [Suspect]
     Indication: OSTEOARTHRITIS
     Dosage: 40LMG  EVERY OTHER WEEK  SQ
     Route: 058
     Dates: start: 20130404

REACTIONS (4)
  - Pyrexia [None]
  - Fatigue [None]
  - Decreased appetite [None]
  - Feeling abnormal [None]
